FAERS Safety Report 4935303-5 (Version None)
Quarter: 2006Q1

REPORT INFORMATION
  Report Type: 
  Country: None (occurrence: None)
  Receive Date: 20060302
  Receipt Date: 20060215
  Transmission Date: 20060701
  Serious: Yes (Hospitalization, Other)
  Sender: FDA-Public Use
  Company Number: US_0507120136

PATIENT
  Age: 46 Year
  Sex: Female
  Weight: 73.6 kg

DRUGS (1)
  1. CYMBALTA [Suspect]
     Indication: DEPRESSION
     Dosage: 60 MG
     Dates: start: 20050106

REACTIONS (2)
  - RETINAL DETACHMENT [None]
  - RETINAL TEAR [None]
